FAERS Safety Report 5892565-8 (Version None)
Quarter: 2008Q3

REPORT INFORMATION
  Report Type: 
  Country: None (occurrence: None)
  Receive Date: 20080923
  Receipt Date: 20080918
  Transmission Date: 20090109
  Serious: Yes (Hospitalization)
  Sender: FDA-Public Use
  Company Number: JP-ASTRAZENECA-2008AP05485

PATIENT
  Age: 50 Year
  Sex: Female

DRUGS (3)
  1. NOLVADEX [Suspect]
     Indication: BREAST CANCER
     Dosage: DOSE UNKNOWN
     Route: 048
     Dates: end: 20080321
  2. NOLVADEX [Suspect]
     Dosage: DOSE UNKNOWN
     Route: 048
     Dates: start: 20080501, end: 20080526
  3. ZOLADEX [Suspect]
     Indication: BREAST CANCER
     Route: 058
     Dates: start: 20080101

REACTIONS (1)
  - INTERSTITIAL LUNG DISEASE [None]
